FAERS Safety Report 7167054-3 (Version None)
Quarter: 2010Q4

REPORT INFORMATION
  Report Type: 
  Country: None (occurrence: None)
  Receive Date: 20101216
  Receipt Date: 20101210
  Transmission Date: 20110411
  Serious: Yes (Hospitalization)
  Sender: FDA-Public Use
  Company Number: B0689355A

PATIENT
  Sex: Male
  Weight: 75.5 kg

DRUGS (9)
  1. ALKERAN [Suspect]
     Indication: MULTIPLE MYELOMA
     Dosage: 18MG PER DAY
     Route: 065
     Dates: start: 20091029, end: 20091101
  2. THALIDOMIDE [Suspect]
     Indication: MULTIPLE MYELOMA
     Dosage: 200MG PER DAY
     Route: 048
     Dates: start: 20091029
  3. PREDNISONE [Suspect]
     Indication: MULTIPLE MYELOMA
     Dosage: 150MG PER DAY
     Route: 065
     Dates: start: 20091029, end: 20091101
  4. DURAGESIC-100 [Concomitant]
     Indication: BONE PAIN
     Route: 048
  5. PULMICORT [Concomitant]
     Indication: PRODUCT USED FOR UNKNOWN INDICATION
     Route: 048
  6. BRICANYL [Concomitant]
     Indication: ASTHMA
     Route: 048
  7. DOLIPRANE [Concomitant]
     Indication: BONE PAIN
     Route: 048
  8. LOVENOX [Concomitant]
     Indication: THROMBOSIS PROPHYLAXIS
  9. SYMBICORT [Concomitant]
     Indication: ASTHMA
     Route: 048

REACTIONS (3)
  - AORTIC VALVE INCOMPETENCE [None]
  - LUNG INFECTION [None]
  - PROTEINURIA [None]
